FAERS Safety Report 7882374-2 (Version None)
Quarter: 2011Q4

REPORT INFORMATION
  Report Type: 
  Country: None (occurrence: None)
  Receive Date: 20111101
  Receipt Date: 20110614
  Transmission Date: 20120403
  Serious: No
  Sender: FDA-Public Use
  Company Number: US-AMGEN-USASP2011025804

PATIENT
  Sex: Female

DRUGS (2)
  1. REMICADE [Concomitant]
  2. ENBREL [Suspect]
     Indication: RHEUMATOID ARTHRITIS
     Dosage: 25 MG, 2 TIMES/WK
     Dates: start: 20060101, end: 20080101

REACTIONS (3)
  - PAIN [None]
  - JOINT SWELLING [None]
  - THERAPEUTIC RESPONSE DECREASED [None]
